FAERS Safety Report 7276617-6 (Version None)
Quarter: 2011Q1

REPORT INFORMATION
  Report Type: 
  Country: None (occurrence: None)
  Receive Date: 20110204
  Receipt Date: 20110124
  Transmission Date: 20110831
  Serious: Yes (Death, Hospitalization)
  Sender: FDA-Public Use
  Company Number: DE-BAYER-201028447GPV

PATIENT
  Sex: Female
  Weight: 90 kg

DRUGS (14)
  1. VESICARE [Concomitant]
     Dosage: 5 MG, OM
  2. SIMVASTATIN [Concomitant]
     Dosage: 10 MG, HS
  3. IDEOS [Concomitant]
     Dosage: UNK
  4. DECORTIN [Concomitant]
     Dosage: UNK UNK, OM
  5. TORASEMID SANDOZ [Concomitant]
  6. DIGITOXIN [Concomitant]
     Dosage: 0.07 MG, OM
  7. BELOC ZOK [Concomitant]
     Dosage: UNK
  8. UNKNOWN DRUG [Concomitant]
     Dosage: 10 MG, OM
  9. UNCODEABLE ^UNCLASSIFIABLE^ [Concomitant]
     Dosage: 20 MG, TID
  10. UNCODEABLE ^UNCLASSIFIABLE^ [Concomitant]
     Dosage: UNK
  11. MARCUMAR [Concomitant]
     Dosage: UNK
  12. APROVEL [Concomitant]
     Dosage: 50 MG, OM
  13. AVELOX [Suspect]
     Indication: BRONCHITIS BACTERIAL
     Dosage: 400 MG, QD
     Route: 048
     Dates: start: 20100516, end: 20100526
  14. TEBONIN [Concomitant]
     Dosage: 120 MG, QD

REACTIONS (7)
  - PULMONARY OEDEMA [None]
  - CARDIOGENIC SHOCK [None]
  - EXTRASYSTOLES [None]
  - CARDIAC FAILURE [None]
  - PLEURAL EFFUSION [None]
  - ARRHYTHMIA [None]
  - ACUTE MYOCARDIAL INFARCTION [None]
